FAERS Safety Report 9899919 (Version 1)
Quarter: 2014Q1

REPORT INFORMATION
  Report Type: Not Available
  Country: US (occurrence: US)
  Receive Date: 20140214
  Receipt Date: 20140214
  Transmission Date: 20141002
  Serious: No
  Sender: FDA-Public Use
  Company Number: US-VIVUS-2013V1000807

PATIENT
  Age: 30 Year
  Sex: Female
  Weight: 70.82 kg

DRUGS (3)
  1. QSYMIA 3.75MG/23MG [Suspect]
     Indication: WEIGHT DECREASED
     Route: 048
     Dates: start: 20131015
  2. LEVAQUIN [Concomitant]
     Indication: INCISION SITE INFECTION
     Route: 048
     Dates: start: 2013, end: 201310
  3. LOESTRIN [Concomitant]
     Indication: MENSTRUAL CYCLE MANAGEMENT
     Route: 048
     Dates: start: 2013

REACTIONS (2)
  - Vaginal haemorrhage [Not Recovered/Not Resolved]
  - Menorrhagia [Not Recovered/Not Resolved]
